FAERS Safety Report 9929043 (Version 1)
Quarter: 2014Q1

REPORT INFORMATION
  Report Type: Spontaneous
  Country: AU (occurrence: None)
  Receive Date: 20140224
  Receipt Date: 20140224
  Transmission Date: 20141002
  Serious: Yes (Hospitalization)
  Sender: FDA-Public Use
  Company Number: FK201400606

PATIENT
  Age: 75 Year
  Sex: Female

DRUGS (7)
  1. GEMCITABINE (MANUFACTURER UNKNOWN) (GEMCITABINE) (GEMCITABINE) [Suspect]
     Indication: ADENOCARCINOMA PANCREAS
     Route: 042
     Dates: start: 201103, end: 20111010
  2. PANCREATIC ENZYMES (PANCRELIFEASE) [Concomitant]
  3. ATENOLOL (ATENOLOL) [Concomitant]
  4. FRUSEMIDE (FUROSEMIDE) [Concomitant]
  5. MELOXICAM (MELOXICAM) [Concomitant]
  6. DIGOXIN (DIGOXIN) [Concomitant]
  7. ASPIRIN (ACETYLSALICYCLIC ACID) [Concomitant]

REACTIONS (9)
  - Fluid overload [None]
  - Renal failure acute [None]
  - Thrombotic microangiopathy [None]
  - Convulsion [None]
  - Hypertension [None]
  - Haemodialysis [None]
  - Pulmonary embolism [None]
  - Disease progression [None]
  - Adenocarcinoma pancreas [None]
